FAERS Safety Report 25457596 (Version 1)
Quarter: 2025Q2

REPORT INFORMATION
  Report Type: Report from Study
  Country: US (occurrence: US)
  Receive Date: 20250619
  Receipt Date: 20250619
  Transmission Date: 20250716
  Serious: Yes (Hospitalization, Other)
  Sender: BIOCRYST PHARMACEUTICALS
  Company Number: US-BIOCRYST PHARMACEUTICALS, INC.-2025BCR00827

PATIENT

DRUGS (13)
  1. ORLADEYO [Suspect]
     Active Substance: BEROTRALSTAT HYDROCHLORIDE
     Indication: Hereditary angioedema
     Dosage: 110 MG, QD
     Route: 048
     Dates: start: 20210222
  2. PRAVACHOL [Concomitant]
     Active Substance: PRAVASTATIN SODIUM
  3. MELOXICAM [Concomitant]
     Active Substance: MELOXICAM
  4. VITAMIN D2 [Concomitant]
     Active Substance: ERGOCALCIFEROL
  5. EPIPEN [Concomitant]
     Active Substance: EPINEPHRINE
  6. TAKHZYRO [Concomitant]
     Active Substance: LANADELUMAB-FLYO
  7. MINERALS\VITAMINS [Concomitant]
     Active Substance: MINERALS\VITAMINS
  8. HYDROCHLOROTHIAZIDE [Concomitant]
     Active Substance: HYDROCHLOROTHIAZIDE
  9. CELEBREX [Concomitant]
     Active Substance: CELECOXIB
  10. GABAPENTIN [Concomitant]
     Active Substance: GABAPENTIN
  11. FAMOTIDINE [Concomitant]
     Active Substance: FAMOTIDINE
  12. PROLIA [Concomitant]
     Active Substance: DENOSUMAB
  13. TERIPARATIDE [Concomitant]
     Active Substance: TERIPARATIDE

REACTIONS (3)
  - Loss of consciousness [Unknown]
  - Fall [Unknown]
  - Cervical vertebral fracture [Recovering/Resolving]

NARRATIVE: CASE EVENT DATE: 20241230
